FAERS Safety Report 9752296 (Version 1)
Quarter: 2013Q4

REPORT INFORMATION
  Report Type: Spontaneous
  Country: US (occurrence: None)
  Receive Date: 20131212
  Receipt Date: 20131212
  Transmission Date: 20140711
  Serious: No
  Sender: FDA-Public Use
  Company Number: None

PATIENT
  Age: 57 Year
  Sex: Female
  Weight: 63.5 kg

DRUGS (1)
  1. PROLIA AMGEN [Suspect]
     Indication: BONE DENSITY ABNORMAL
     Dosage: SHOT  6 MONTHS  INTO THE MUSCLE
     Route: 030
     Dates: start: 20131016

REACTIONS (3)
  - Pruritus [None]
  - Skin exfoliation [None]
  - Urticaria [None]
